FAERS Safety Report 13657269 (Version 2)
Quarter: 2017Q2

REPORT INFORMATION
  Report Type: Report from Study
  Country: IL (occurrence: IL)
  Receive Date: 20170615
  Receipt Date: 20170616
  Transmission Date: 20170830
  Serious: Yes (Death, Hospitalization)
  Sender: FDA-Public Use
  Company Number: IL-JNJFOC-20170611896

PATIENT
  Age: 66 Year
  Sex: Female
  Weight: 73 kg

DRUGS (2)
  1. STELARA [Suspect]
     Active Substance: USTEKINUMAB
     Indication: PSORIASIS
     Route: 058
     Dates: start: 201109, end: 201503
  2. METHOTREXATE. [Concomitant]
     Active Substance: METHOTREXATE
     Route: 065

REACTIONS (4)
  - Acute kidney injury [Fatal]
  - Pancytopenia [Fatal]
  - Sepsis [Fatal]
  - Cellulitis [Fatal]

NARRATIVE: CASE EVENT DATE: 20161117
